FAERS Safety Report 4845474-7 (Version None)
Quarter: 2005Q4

REPORT INFORMATION
  Report Type: 
  Country: None (occurrence: None)
  Receive Date: 20051201
  Receipt Date: 20051114
  Transmission Date: 20060501
  Serious: Yes (Death, Other)
  Sender: FDA-Public Use
  Company Number: US200511001305

PATIENT
  Age: 72 Year
  Sex: Male

DRUGS (2)
  1. GEMZAR [Suspect]
     Indication: PANCREATIC CARCINOMA METASTATIC
     Dosage: 1000 MG/M2, OTHER, INTRAVENOUS
     Route: 042
  2. BEVACIZUMAB (BEVACIZUMAB) [Concomitant]

REACTIONS (4)
  - ABDOMINAL PAIN [None]
  - INTESTINAL PERFORATION [None]
  - PERITONITIS [None]
  - PYREXIA [None]
